FAERS Safety Report 13487599 (Version 1)
Quarter: 2017Q2

REPORT INFORMATION
  Report Type: Spontaneous
  Country: US (occurrence: US)
  Receive Date: 20170426
  Receipt Date: 20170426
  Transmission Date: 20170830
  Serious: No
  Sender: FDA-Public Use
  Company Number: US-ALKERMES INC.-ALK-2016-003288

PATIENT
  Age: 41 Year
  Sex: Male

DRUGS (1)
  1. VIVITROL [Suspect]
     Active Substance: NALTREXONE
     Indication: DRUG USE DISORDER
     Dosage: 380 MG, QMO
     Route: 030
     Dates: start: 20161103

REACTIONS (10)
  - Speech disorder [Unknown]
  - Feeling jittery [Unknown]
  - Head discomfort [Unknown]
  - Abnormal behaviour [Unknown]
  - Insomnia [Unknown]
  - Fatigue [Unknown]
  - Restlessness [Unknown]
  - Decreased appetite [Unknown]
  - Delirium [Unknown]
  - Agitation [Unknown]

NARRATIVE: CASE EVENT DATE: 20161103
